FAERS Safety Report 11189447 (Version 2)
Quarter: 2015Q3

REPORT INFORMATION
  Report Type: Spontaneous
  Country: US (occurrence: US)
  Receive Date: 20150615
  Receipt Date: 20150803
  Transmission Date: 20151125
  Serious: Yes (Other)
  Sender: FDA-Public Use
  Company Number: US-PFIZER INC-2015199337

PATIENT
  Age: 76 Year
  Sex: Female
  Weight: 77 kg

DRUGS (5)
  1. CHLORTALIDONE [Concomitant]
     Active Substance: CHLORTHALIDONE
     Dosage: 12.5 MG, DAILY
  2. POTASSIUM CHLORIDE. [Concomitant]
     Active Substance: POTASSIUM CHLORIDE
     Indication: BLOOD MAGNESIUM ABNORMAL
     Dosage: 10 MEQ, 1X/DAY
  3. CADUET [Suspect]
     Active Substance: AMLODIPINE BESYLATE\ATORVASTATIN CALCIUM
     Indication: CARDIAC DISORDER
     Dosage: 5 MG/40 MG, 1X/DAY
  4. CQ10 [Concomitant]
     Active Substance: UBIDECARENONE
     Dosage: UNK, DAILY
  5. POTASSIUM CHLORIDE. [Concomitant]
     Active Substance: POTASSIUM CHLORIDE
     Indication: BLOOD POTASSIUM ABNORMAL

REACTIONS (2)
  - Upper limb fracture [Unknown]
  - Fall [Unknown]

NARRATIVE: CASE EVENT DATE: 201503
